FAERS Safety Report 6468800-4 (Version None)
Quarter: 2009Q4

REPORT INFORMATION
  Report Type: 
  Country: None (occurrence: None)
  Receive Date: 20091203
  Receipt Date: 20090617
  Transmission Date: 20100525
  Serious: Yes (Other)
  Sender: FDA-Public Use
  Company Number: US-ELI_LILLY_AND_COMPANY-USA0509108832

PATIENT
  Sex: Female

DRUGS (6)
  1. CYMBALTA [Suspect]
     Indication: FIBROMYALGIA
     Dosage: 30 MG, UNKNOWN
     Dates: start: 20050917
  2. CYMBALTA [Suspect]
     Dosage: 1 D/F, DAILY (1/D)
     Dates: start: 20090501, end: 20090616
  3. XANAX [Concomitant]
     Dosage: UNK, UNKNOWN
  4. NORVASC [Concomitant]
     Dosage: UNK, UNKNOWN
  5. PEPCIDIN [Concomitant]
  6. VITAMINS NOS [Concomitant]

REACTIONS (12)
  - ABNORMAL DREAMS [None]
  - DIZZINESS [None]
  - DYSPEPSIA [None]
  - DYSPNOEA [None]
  - DYSURIA [None]
  - FATIGUE [None]
  - NAUSEA [None]
  - PALPITATIONS [None]
  - RASH [None]
  - SYNCOPE [None]
  - TREMOR [None]
  - VISION BLURRED [None]
